FAERS Safety Report 15189587 (Version 2)
Quarter: 2018Q3

REPORT INFORMATION
  Report Type: Spontaneous
  Country: AU (occurrence: AU)
  Receive Date: 20180724
  Receipt Date: 20180730
  Transmission Date: 20181010
  Serious: Yes (Hospitalization)
  Sender: FDA-Public Use
  Company Number: AU-CELGENEUS-AUS-20180706921

PATIENT
  Age: 69 Year
  Sex: Female
  Weight: 72.2 kg

DRUGS (26)
  1. MAXOLON [Concomitant]
     Active Substance: METOCLOPRAMIDE HYDROCHLORIDE
     Indication: VOMITING
     Dosage: 40 MILLIGRAM
     Route: 048
     Dates: start: 20160928
  2. FILGRASTIM [Concomitant]
     Active Substance: FILGRASTIM
     Indication: PROPHYLAXIS
     Dosage: 150 MILLICURIES
     Route: 058
     Dates: start: 20170717
  3. MICARDIS [Concomitant]
     Active Substance: TELMISARTAN
     Indication: HYPERTENSION
     Dosage: 40 MILLIGRAM
     Route: 048
     Dates: start: 20170727
  4. ESOMEPRAZOLE [Concomitant]
     Active Substance: ESOMEPRAZOLE
     Indication: PROPHYLAXIS
     Dosage: 80 MILLIGRAM
     Route: 048
     Dates: start: 20160907
  5. SPIRIVA [Concomitant]
     Active Substance: TIOTROPIUM BROMIDE MONOHYDRATE
     Indication: PRODUCT USED FOR UNKNOWN INDICATION
     Route: 065
  6. DARATUMUMAB [Concomitant]
     Active Substance: DARATUMUMAB
     Indication: PLASMA CELL MYELOMA
     Dosage: 1184 MILLIGRAM
     Route: 041
     Dates: start: 20160907, end: 20180613
  7. ASPIRIN. [Concomitant]
     Active Substance: ASPIRIN
     Indication: PROPHYLAXIS
     Dosage: 100 MILLIGRAM
     Route: 048
     Dates: start: 2014
  8. VITAMIN D [Concomitant]
     Active Substance: CHOLECALCIFEROL
     Indication: VITAMIN D DEFICIENCY
     Dosage: 1000 IU (INTERNATIONAL UNIT)
     Route: 048
     Dates: start: 20160819
  9. NORFLOXACIN [Concomitant]
     Active Substance: NORFLOXACIN
     Indication: URINARY TRACT INFECTION PSEUDOMONAL
     Dosage: 800 MILLIGRAM
     Route: 048
     Dates: start: 20180423
  10. VALACICLOVIR [Concomitant]
     Active Substance: VALACYCLOVIR HYDROCHLORIDE
     Indication: PROPHYLAXIS
     Dosage: 500 MILLIGRAM
     Route: 048
     Dates: start: 20160907
  11. VOLTAREN [Concomitant]
     Active Substance: DICLOFENAC SODIUM
     Indication: NECK PAIN
     Route: 048
     Dates: start: 20170409
  12. IBEROGAST [Concomitant]
     Active Substance: HERBALS
     Indication: PROPHYLAXIS
     Route: 065
     Dates: start: 20171123
  13. DEXAMETHASONE. [Suspect]
     Active Substance: DEXAMETHASONE
     Indication: PLASMA CELL MYELOMA
     Dosage: 20 MILLIGRAM
     Route: 041
     Dates: start: 20160907
  14. VENTOLIN [Concomitant]
     Active Substance: ALBUTEROL SULFATE
     Indication: ASTHMA
     Route: 055
     Dates: start: 2011
  15. MAXOLON [Concomitant]
     Active Substance: METOCLOPRAMIDE HYDROCHLORIDE
     Indication: NAUSEA
  16. ZOLOFT [Concomitant]
     Active Substance: SERTRALINE HYDROCHLORIDE
     Indication: DEPRESSION
     Dosage: 150 MILLIGRAM
     Route: 048
     Dates: start: 20171009
  17. CRESTOR [Concomitant]
     Active Substance: ROSUVASTATIN CALCIUM
     Indication: HYPERCHOLESTEROLAEMIA
     Dosage: 5 MILLIGRAM
     Route: 048
     Dates: start: 2015
  18. MAGNESIUM [Concomitant]
     Active Substance: MAGNESIUM
     Indication: MUSCLE SPASMS
     Dosage: 1 DOSAGE FORMS
     Route: 048
     Dates: start: 201710
  19. BACTRIM [Concomitant]
     Active Substance: SULFAMETHOXAZOLE\TRIMETHOPRIM
     Indication: PROPHYLAXIS
     Route: 048
     Dates: start: 20160908
  20. ZOMETA [Concomitant]
     Active Substance: ZOLEDRONIC ACID
     Indication: PROPHYLAXIS
     Dosage: 4 MILLIGRAM
     Route: 041
     Dates: start: 20160826
  21. PANADENE [Concomitant]
     Indication: OSTEOARTHRITIS
     Route: 048
     Dates: start: 20160910
  22. CALTRATE [Concomitant]
     Active Substance: CALCIUM CARBONATE
     Indication: PROPHYLAXIS
     Dosage: 1 DOSAGE FORMS
     Route: 048
     Dates: start: 20160819
  23. STEMETIL [Concomitant]
     Active Substance: PROCHLORPERAZINE MALEATE
     Indication: VERTIGO
     Route: 048
     Dates: start: 20171126
  24. REVLIMID [Suspect]
     Active Substance: LENALIDOMIDE
     Indication: PLASMA CELL MYELOMA
     Dosage: 5 MILLIGRAM
     Route: 048
     Dates: start: 20160907, end: 20180417
  25. SEREPAX [Concomitant]
     Active Substance: OXAZEPAM
     Indication: DEPRESSION
     Dosage: 15 MILLIGRAM
     Route: 048
     Dates: start: 1999
  26. SERETIDE [Concomitant]
     Active Substance: FLUTICASONE PROPIONATE\SALMETEROL XINAFOATE
     Indication: PRODUCT USED FOR UNKNOWN INDICATION
     Route: 065

REACTIONS (1)
  - Asthma [Recovered/Resolved]

NARRATIVE: CASE EVENT DATE: 20180712
